FAERS Safety Report 11718101 (Version 1)
Quarter: 2015Q4

REPORT INFORMATION
  Report Type: Other
  Country: BR (occurrence: BR)
  Receive Date: 20151110
  Receipt Date: 20151110
  Transmission Date: 20160304
  Serious: Yes (Other)
  Sender: FDA-Public Use
  Company Number: BR-SHIRE-BR201513693

PATIENT
  Age: 42 Year
  Sex: Female
  Weight: 105 kg

DRUGS (2)
  1. TRANEXAMIC ACID. [Concomitant]
     Active Substance: TRANEXAMIC ACID
     Indication: PRODUCT USED FOR UNKNOWN INDICATION
     Dosage: UNK, UNKNOWN
     Route: 065
  2. FIRAZYR [Suspect]
     Active Substance: ICATIBANT ACETATE
     Indication: HEREDITARY ANGIOEDEMA
     Dosage: 30 MG, AS REQ^D
     Route: 058
     Dates: start: 2013

REACTIONS (5)
  - Oedema [Unknown]
  - Mucosal discolouration [Unknown]
  - Abscess [Recovering/Resolving]
  - Pain in extremity [Recovering/Resolving]
  - Laryngeal oedema [Recovered/Resolved]

NARRATIVE: CASE EVENT DATE: 201510
